FAERS Safety Report 8514884-9 (Version None)
Quarter: 2012Q3

REPORT INFORMATION
  Report Type: 
  Country: None (occurrence: None)
  Receive Date: 20120717
  Receipt Date: 20120713
  Transmission Date: 20120928
  Serious: Yes (Other)
  Sender: FDA-Public Use
  Company Number: US-PFIZER INC-2012169737

PATIENT
  Sex: Male
  Weight: 81.63 kg

DRUGS (4)
  1. CARVEDILOL [Concomitant]
     Indication: ATRIAL FIBRILLATION
     Dosage: 6.25 MG, DAILY
  2. PRAVASTATIN [Concomitant]
     Indication: BLOOD CHOLESTEROL INCREASED
     Dosage: 20 MG, DAILY
  3. TIKOSYN [Suspect]
     Indication: ATRIAL FIBRILLATION
     Dosage: 500 MG, 2X/DAY
     Dates: start: 20030317
  4. WARFARIN [Concomitant]
     Indication: ATRIAL FIBRILLATION
     Dosage: 4 MG, DAILY

REACTIONS (1)
  - BLOOD IMMUNOGLOBULIN M INCREASED [None]
